FAERS Safety Report 5704978-5 (Version None)
Quarter: 2008Q2

REPORT INFORMATION
  Report Type: 
  Country: None (occurrence: None)
  Receive Date: 20080414
  Receipt Date: 20080319
  Transmission Date: 20081010
  Serious: No
  Sender: FDA-Public Use
  Company Number: US-BOEHRINGER INGELHEIM GMBH, GERMANY-2008-BP-02634BP

PATIENT
  Age: 26 Year
  Sex: Female
  Weight: 90 kg

DRUGS (5)
  1. MIRAPEX [Suspect]
     Indication: RESTLESS LEGS SYNDROME
     Route: 048
     Dates: start: 20080110, end: 20080111
  2. TOPROL-XL [Concomitant]
     Dates: start: 20071101
  3. CYMBALTA [Concomitant]
     Dates: start: 20080104
  4. YASMIN [Concomitant]
  5. SKELAXIN [Concomitant]

REACTIONS (2)
  - PHARYNGEAL OEDEMA [None]
  - THROAT IRRITATION [None]
